FAERS Safety Report 16232013 (Version 1)
Quarter: 2019Q2

REPORT INFORMATION
  Report Type: Spontaneous
  Country: US (occurrence: US)
  Receive Date: 20190319
  Receipt Date: 20190319
  Transmission Date: 20190711
  Serious: Yes (Disabling, Other)
  Sender: FDA-Public Use
  Company Number: None

PATIENT
  Age: 74 Year
  Sex: Male
  Weight: 86.18 kg

DRUGS (10)
  1. POLYMYXIN-B/TRIMETHOPRIMOPHTH SOL [Concomitant]
  2. ASPIRIN. [Concomitant]
     Active Substance: ASPIRIN
  3. ALBUTEROL. [Concomitant]
     Active Substance: ALBUTEROL
  4. SYMBICORT [Concomitant]
     Active Substance: BUDESONIDE\FORMOTEROL FUMARATE DIHYDRATE
  5. CARVEDILOL. [Concomitant]
     Active Substance: CARVEDILOL
  6. LEVAQUIN [Suspect]
     Active Substance: LEVOFLOXACIN
     Indication: ARTERITIS
     Dates: start: 20180808, end: 20180815
  7. PREDNISONE. [Concomitant]
     Active Substance: PREDNISONE
  8. METHYLPREDNISOLONE. [Concomitant]
     Active Substance: METHYLPREDNISOLONE
  9. PREDNISOLONE AC OPHTH SUSP [Concomitant]
  10. LEVAQUIN [Suspect]
     Active Substance: LEVOFLOXACIN
     Indication: LUNG INFECTION

REACTIONS (1)
  - Tendon rupture [None]

NARRATIVE: CASE EVENT DATE: 20180903
